FAERS Safety Report 9989147 (Version 5)
Quarter: 2014Q3

REPORT INFORMATION
  Report Type: Report from Study
  Country: DE (occurrence: DE)
  Receive Date: 20140310
  Receipt Date: 20140731
  Transmission Date: 20150326
  Serious: Yes (Life-Threatening, Hospitalization)
  Sender: FDA-Public Use
  Company Number: DE-BAYER-2013-151027

PATIENT
  Sex: Male
  Weight: 71 kg

DRUGS (10)
  1. DICLOPHENAC [Concomitant]
     Active Substance: DICLOFENAC SODIUM
     Indication: METASTASIS
  2. PANTOPRAZOLE [Concomitant]
     Active Substance: PANTOPRAZOLE SODIUM
     Indication: PROPHYLAXIS
     Dosage: TOTAL DAILY DOSE 40 MG
     Route: 048
     Dates: start: 20130813
  3. RADIUM-223 DICHLORIDE [Suspect]
     Active Substance: RADIUM RA-223 DICHLORIDE
     Indication: PROSTATE CANCER METASTATIC
     Dosage: UNK
     Route: 042
     Dates: start: 20130903, end: 20130903
  4. NOVAMINSULFON [Concomitant]
     Active Substance: METAMIZOLE
     Indication: METASTASIS
  5. MORPHINE SULFATE. [Concomitant]
     Active Substance: MORPHINE SULFATE
     Indication: METASTASIS
  6. RADIUM-223 DICHLORIDE [Suspect]
     Active Substance: RADIUM RA-223 DICHLORIDE
     Indication: METASTASES TO BONE
     Dosage: UNK
     Route: 042
     Dates: start: 20131008, end: 20131008
  7. RADIUM-223 DICHLORIDE [Suspect]
     Active Substance: RADIUM RA-223 DICHLORIDE
     Indication: PROSTATE CANCER METASTATIC
     Dosage: UNK
     Route: 042
     Dates: start: 20131105, end: 20131105
  8. DICLOPHENAC [Concomitant]
     Active Substance: DICLOFENAC SODIUM
     Indication: PAIN
     Dosage: TOTAL DAILY DOSE 50 MG
     Route: 048
     Dates: start: 20130923
  9. NOVAMINSULFON [Concomitant]
     Active Substance: METAMIZOLE
     Indication: PAIN
     Dosage: TOTAL DAILY DOSE 3000 MG
     Route: 048
     Dates: start: 20131201
  10. MORPHINE SULFATE. [Concomitant]
     Active Substance: MORPHINE SULFATE
     Indication: PAIN
     Dosage: TOTAL DAILY DOSE 120 MG
     Route: 058
     Dates: start: 20130923

REACTIONS (2)
  - Metastases to central nervous system [Recovered/Resolved with Sequelae]
  - Tumour haemorrhage [Recovered/Resolved with Sequelae]

NARRATIVE: CASE EVENT DATE: 20131201
